FAERS Safety Report 20988482 (Version 1)
Quarter: 2022Q2

REPORT INFORMATION
  Report Type: Spontaneous
  Country: CZ (occurrence: CZ)
  Receive Date: 20220621
  Receipt Date: 20220621
  Transmission Date: 20220721
  Serious: Yes (Life-Threatening, Hospitalization, Other)
  Sender: FDA-Public Use
  Company Number: None

PATIENT
  Age: 69 Year
  Sex: Female
  Weight: 91 kg

DRUGS (1)
  1. PACLITAXEL [Suspect]
     Active Substance: PACLITAXEL
     Indication: Breast cancer
     Dosage: 125 MILLIGRAM DAILY; ONCE A WEEK , UNIT DOSE : 125 MG , FREQUENCY  : 1 , FREQUENCY TIME : 1 WEEKS ,
     Route: 041
     Dates: start: 20220412, end: 20220426

REACTIONS (4)
  - Dehydration [Recovering/Resolving]
  - Syncope [Recovering/Resolving]
  - Tachycardia [Recovering/Resolving]
  - Stomatitis [Recovering/Resolving]

NARRATIVE: CASE EVENT DATE: 20220425
